FAERS Safety Report 6152238-3 (Version None)
Quarter: 2009Q2

REPORT INFORMATION
  Report Type: 
  Country: None (occurrence: None)
  Receive Date: 20090410
  Receipt Date: 20090401
  Transmission Date: 20091009
  Serious: Yes (Other)
  Sender: FDA-Public Use
  Company Number: US-ABBOTT-09P-163-0558067-00

PATIENT
  Sex: Female

DRUGS (9)
  1. HUMIRA [Suspect]
     Indication: PSORIATIC ARTHROPATHY
     Dates: end: 20080501
  2. HUMIRA [Suspect]
  3. HUMIRA [Suspect]
     Dosage: SYRINGE
     Dates: start: 20040101
  4. SYNTHROID [Concomitant]
     Indication: THYROID DISORDER
     Dosage: 2 PILLS DAILY
  5. PREDNISONE TAB [Concomitant]
     Indication: DRUG USE FOR UNKNOWN INDICATION
     Route: 048
     Dates: start: 20090101
  6. SALAGEN [Concomitant]
     Indication: DRUG USE FOR UNKNOWN INDICATION
  7. ATARAX [Concomitant]
     Indication: PRURITUS
  8. NEURONTIN [Concomitant]
     Indication: DRUG USE FOR UNKNOWN INDICATION
  9. UNKNOWN OTHER PSORIATIC ARTHRITIS MEDICATION [Concomitant]
     Indication: PSORIATIC ARTHROPATHY
     Dates: end: 20080101

REACTIONS (3)
  - DRUG INEFFECTIVE [None]
  - MALIGNANT MELANOMA [None]
  - SKIN DISORDER [None]
